FAERS Safety Report 9905413 (Version 1)
Quarter: 2014Q1

REPORT INFORMATION
  Report Type: Spontaneous
  Country: BR (occurrence: BR)
  Receive Date: 20140218
  Receipt Date: 20140218
  Transmission Date: 20141002
  Serious: Yes (Other)
  Sender: FDA-Public Use
  Company Number: BR-GLAXOSMITHKLINE-A1061367A

PATIENT
  Sex: Female

DRUGS (1)
  1. NIQUITIN [Suspect]
     Indication: SMOKING CESSATION THERAPY
     Route: 065

REACTIONS (3)
  - Poisoning [Recovered/Resolved]
  - Anxiety [Unknown]
  - Skin discolouration [Not Recovered/Not Resolved]
